FAERS Safety Report 10934491 (Version 9)
Quarter: 2015Q4

REPORT INFORMATION
  Report Type: Spontaneous
  Country: US (occurrence: US)
  Receive Date: 20150320
  Receipt Date: 20151117
  Transmission Date: 20160304
  Serious: Yes (Other)
  Sender: FDA-Public Use
  Company Number: US-PFIZER INC-2015094447

PATIENT
  Age: 57 Year
  Sex: Male
  Weight: 81 kg

DRUGS (4)
  1. SUTENT [Suspect]
     Active Substance: SUNITINIB MALATE
     Dosage: 50 MG, 1X/DAY
     Dates: start: 201502
  2. SENSIPAR [Concomitant]
     Active Substance: CINACALCET HYDROCHLORIDE
     Dosage: UNK
     Dates: start: 201501
  3. SUTENT [Suspect]
     Active Substance: SUNITINIB MALATE
     Indication: METASTATIC RENAL CELL CARCINOMA
     Dosage: 50 MG DAILY, CYCLIC, (28DAYS ON, 14 DAYS OFF)
     Dates: start: 20150225
  4. NEPHROCAPS [Concomitant]
     Active Substance: ASCORBIC ACID\BIOTIN\CYANOCOBALAMIN\FOLIC ACID\NIACIN\PANTOTHENIC ACID\PYRIDOXINE\RIBOFLAVIN\THIAMINE
     Dosage: UNK
     Dates: start: 200912

REACTIONS (19)
  - Tumour pain [Not Recovered/Not Resolved]
  - Fatigue [Recovered/Resolved]
  - Pain [Not Recovered/Not Resolved]
  - Restless legs syndrome [Recovered/Resolved]
  - Blood calcium increased [Recovered/Resolved]
  - Oral pain [Not Recovered/Not Resolved]
  - Dysgeusia [Not Recovered/Not Resolved]
  - Diarrhoea [Not Recovered/Not Resolved]
  - Blood pressure increased [Recovered/Resolved]
  - Dyspepsia [Recovered/Resolved]
  - Pruritus [Not Recovered/Not Resolved]
  - Oral discomfort [Not Recovered/Not Resolved]
  - Nausea [Recovered/Resolved]
  - Insomnia [Recovered/Resolved]
  - Haemorrhoids [Recovered/Resolved]
  - Abdominal discomfort [Recovered/Resolved]
  - Dry skin [Not Recovered/Not Resolved]
  - Ageusia [Not Recovered/Not Resolved]
  - Arthralgia [Not Recovered/Not Resolved]

NARRATIVE: CASE EVENT DATE: 201502
